FAERS Safety Report 6068005-5 (Version None)
Quarter: 2009Q1

REPORT INFORMATION
  Report Type: 
  Country: None (occurrence: None)
  Receive Date: 20090206
  Receipt Date: 20090203
  Transmission Date: 20090719
  Serious: Yes (Death, Hospitalization)
  Sender: FDA-Public Use
  Company Number: US-BRISTOL-MYERS SQUIBB COMPANY-14477483

PATIENT
  Age: 51 Year
  Sex: Female

DRUGS (3)
  1. ERBITUX [Suspect]
     Indication: RECTAL CANCER
     Dosage: INITIATED AT 1DEC08,INTERRUPTED AT 12JAN09
     Dates: start: 20090105, end: 20090105
  2. FLUOROURACIL [Suspect]
     Indication: RECTAL CANCER
     Dosage: INITIATED AT 8DEC08,INTERRUPTED AT 12JAN09
     Dates: start: 20090112, end: 20090112
  3. RADIOTHERAPY [Suspect]
     Indication: RECTAL CANCER

REACTIONS (2)
  - DEHYDRATION [None]
  - SEPSIS [None]
